FAERS Safety Report 23471074 (Version 2)
Quarter: 2024Q1

REPORT INFORMATION
  Report Type: Spontaneous
  Country: CA (occurrence: CA)
  Receive Date: 20240202
  Receipt Date: 20240207
  Transmission Date: 20240410
  Serious: Yes (Hospitalization, Other)
  Sender: FDA-Public Use
  Company Number: CA-PFIZER INC-202400030727

PATIENT
  Age: 81 Year
  Sex: Female

DRUGS (2)
  1. CIBINQO [Suspect]
     Active Substance: ABROCITINIB
     Indication: Dermatitis atopic
     Dosage: 100 MG, 1X/DAY
     Route: 048
     Dates: start: 20231101
  2. CIBINQO [Suspect]
     Active Substance: ABROCITINIB
     Dosage: 100 MG, 1X/DAY
     Route: 048
     Dates: start: 20240127

REACTIONS (2)
  - Gastrointestinal haemorrhage [Recovered/Resolved]
  - Haemoglobin decreased [Unknown]

NARRATIVE: CASE EVENT DATE: 20240124
